FAERS Safety Report 9381400 (Version 1)
Quarter: 2013Q3

REPORT INFORMATION
  Report Type: Report from Study
  Country: US (occurrence: US)
  Receive Date: 20130703
  Receipt Date: 20130703
  Transmission Date: 20140515
  Serious: Yes (Other)
  Sender: FDA-Public Use
  Company Number: PHEH2013US013616

PATIENT
  Sex: Male

DRUGS (6)
  1. GILENYA [Suspect]
     Indication: MULTIPLE SCLEROSIS
     Dosage: 0.5 MG, QD
     Route: 048
     Dates: start: 20121207
  2. PREDNISONE [Concomitant]
  3. XANAX [Concomitant]
  4. AMOXICILLIN [Concomitant]
  5. CIPRO ^MILES^ [Concomitant]
  6. NEURONTIN [Concomitant]

REACTIONS (1)
  - Intervertebral disc protrusion [Unknown]
